FAERS Safety Report 22271904 (Version 4)
Quarter: 2024Q2

REPORT INFORMATION
  Report Type: Report from Study
  Country: US (occurrence: US)
  Receive Date: 20230502
  Receipt Date: 20240501
  Transmission Date: 20240716
  Serious: Yes (Death, Other)
  Sender: FDA-Public Use
  Company Number: US-ACADIA PHARMACEUTICALS INC.-ACA-2023-PIM-001424

PATIENT
  Sex: Female

DRUGS (3)
  1. NUPLAZID [Suspect]
     Active Substance: PIMAVANSERIN TARTRATE
     Indication: Parkinson^s disease psychosis
     Dosage: 34 MILLIGRAM, QD
     Route: 048
  2. DONEPEZIL [Concomitant]
     Active Substance: DONEPEZIL
  3. CARBIDOPA\LEVODOPA [Concomitant]
     Active Substance: CARBIDOPA\LEVODOPA
     Dosage: 25MG-100MG, 1 WHOLE TAB EACH MORNING, AND ONE HALF TAB TWICE A DAY

REACTIONS (4)
  - Death [Fatal]
  - Lethargy [Unknown]
  - Urinary tract infection [Unknown]
  - Hypersomnia [Unknown]
